FAERS Safety Report 15591807 (Version 2)
Quarter: 2018Q4

REPORT INFORMATION
  Report Type: Spontaneous
  Country: GT (occurrence: GT)
  Receive Date: 20181107
  Receipt Date: 20181116
  Transmission Date: 20190205
  Serious: Yes (Other)
  Sender: FDA-Public Use
  Company Number: PHHY2018GT149101

PATIENT
  Age: 61 Year
  Sex: Female
  Weight: 60.7 kg

DRUGS (1)
  1. ACLASTA [Suspect]
     Active Substance: ZOLEDRONIC ACID
     Indication: OSTEOPOROSIS
     Dosage: UNK
     Route: 042
     Dates: start: 20181018

REACTIONS (6)
  - Arthralgia [Recovering/Resolving]
  - Pyrexia [Recovering/Resolving]
  - Eye haemorrhage [Unknown]
  - Dysstasia [Unknown]
  - Discomfort [Recovering/Resolving]
  - Pain in extremity [Recovering/Resolving]

NARRATIVE: CASE EVENT DATE: 20181019
